FAERS Safety Report 20900552 (Version 2)
Quarter: 2022Q3

REPORT INFORMATION
  Report Type: Report from Study
  Country: CA (occurrence: CA)
  Receive Date: 20220601
  Receipt Date: 20220804
  Transmission Date: 20221027
  Serious: Yes (Hospitalization)
  Sender: FDA-Public Use
  Company Number: CA-KOREA IPSEN Pharma-2022-13304

PATIENT
  Age: 77 Year
  Sex: Female

DRUGS (18)
  1. LANREOTIDE ACETATE [Suspect]
     Active Substance: LANREOTIDE ACETATE
     Indication: Neuroendocrine tumour
     Route: 058
     Dates: start: 20220225, end: 2022
  2. APIDRA [Concomitant]
     Active Substance: INSULIN GLULISINE
  3. BASAGLAR [Concomitant]
     Active Substance: INSULIN GLARGINE
  4. JANUMET [Concomitant]
     Active Substance: METFORMIN HYDROCHLORIDE\SITAGLIPTIN PHOSPHATE
  5. METOCLOPRAMIDE HYDROCHLORIDE [Concomitant]
     Active Substance: METOCLOPRAMIDE HYDROCHLORIDE
  6. ALDACTONE [Concomitant]
     Active Substance: SPIRONOLACTONE
  7. LOVENOX [Concomitant]
     Active Substance: ENOXAPARIN SODIUM
     Route: 058
     Dates: end: 20220301
  8. ATORVASTATIN [Concomitant]
     Active Substance: ATORVASTATIN
  9. HYDROCHLOROTHIAZIDE [Concomitant]
     Active Substance: HYDROCHLOROTHIAZIDE
  10. BISOPROLOL [Concomitant]
     Active Substance: BISOPROLOL
  11. PANTOPRAZOLE [Concomitant]
     Active Substance: PANTOPRAZOLE
  12. CALCIUM CARBONATE [Concomitant]
     Active Substance: CALCIUM CARBONATE
  13. VITAMIN D3 [Concomitant]
     Active Substance: CHOLECALCIFEROL
  14. TOVIAZ [Concomitant]
     Active Substance: FESOTERODINE FUMARATE
     Dosage: QHS
  15. ZOPICLONE [Concomitant]
     Active Substance: ZOPICLONE
     Dosage: QHS
  16. LORAZEPAM [Concomitant]
     Active Substance: LORAZEPAM
     Dosage: PRN
  17. DOCUSATE SODIUM [Concomitant]
     Active Substance: DOCUSATE SODIUM
     Dosage: 1-2 DAILY
  18. GRAVOL [Concomitant]
     Active Substance: DIMENHYDRINATE
     Dosage: PRN

REACTIONS (1)
  - General physical health deterioration [Unknown]

NARRATIVE: CASE EVENT DATE: 20220101
